FAERS Safety Report 4733772-7 (Version None)
Quarter: 2005Q3

REPORT INFORMATION
  Report Type: 
  Country: None (occurrence: None)
  Receive Date: 20050729
  Receipt Date: 20050725
  Transmission Date: 20060218
  Serious: Yes (Hospitalization)
  Sender: FDA-Public Use
  Company Number: A044-002-005684

PATIENT
  Age: 61 Year
  Sex: Male

DRUGS (8)
  1. ARICEPT [Suspect]
     Indication: ABNORMAL BEHAVIOUR
     Dosage: 5 MG, 1 IN 1 D, ORAL
     Route: 048
     Dates: start: 20041115, end: 20050103
  2. ARICEPT [Suspect]
     Indication: AMNESIA
     Dosage: 5 MG, 1 IN 1 D, ORAL
     Route: 048
     Dates: start: 20041115, end: 20050103
  3. ARICEPT [Suspect]
     Indication: DEMENTIA ALZHEIMER'S TYPE
     Dosage: 5 MG, 1 IN 1 D, ORAL
     Route: 048
     Dates: start: 20041115, end: 20050103
  4. ARICEPT [Suspect]
     Indication: GASTRITIS
     Dosage: 5 MG, 1 IN 1 D, ORAL
     Route: 048
     Dates: start: 20041115, end: 20050103
  5. ARICEPT [Suspect]
     Indication: MENTAL DISORDER
     Dosage: 5 MG, 1 IN 1 D, ORAL
     Route: 048
     Dates: start: 20041115, end: 20050103
  6. KLACID           (CLARITHROMYCIN) [Suspect]
     Indication: GASTRITIS
     Dosage: 1 GM, 1 IN 1 D, ORAL
     Route: 048
     Dates: start: 20041231, end: 20050109
  7. AMOXICILLLIN              (AMOXICILLIN) [Concomitant]
  8. MARCUMAR [Concomitant]

REACTIONS (3)
  - DIZZINESS [None]
  - DRUG INTERACTION [None]
  - HYPOTENSION [None]
